FAERS Safety Report 4397948-3 (Version None)
Quarter: 2004Q3

REPORT INFORMATION
  Report Type: 
  Country: None (occurrence: None)
  Receive Date: 20040713
  Receipt Date: 20040629
  Transmission Date: 20050211
  Serious: Yes (Hospitalization, Other)
  Sender: FDA-Public Use
  Company Number: HQWYE861502JUL04

PATIENT
  Age: 68 Year
  Sex: Male

DRUGS (4)
  1. ETODOLAC [Suspect]
     Indication: PAIN
  2. FLUTICASONE PROPIONATE [Concomitant]
  3. ALENDRONATE SODIUM [Concomitant]
  4. SALMETEROL [Concomitant]

REACTIONS (7)
  - ASTHMA [None]
  - BRONCHOSPASM [None]
  - CONDITION AGGRAVATED [None]
  - DYSPNOEA [None]
  - NASAL CONGESTION [None]
  - OXYGEN SATURATION DECREASED [None]
  - WHEEZING [None]
